FAERS Safety Report 21559410 (Version 1)
Quarter: 2022Q4

REPORT INFORMATION
  Report Type: Spontaneous
  Country: US (occurrence: None)
  Receive Date: 20221103
  Receipt Date: 20221103
  Transmission Date: 20230113
  Serious: No
  Sender: FDA-Public Use
  Company Number: None

PATIENT

DRUGS (2)
  1. CYMBALTA [Suspect]
     Active Substance: DULOXETINE HYDROCHLORIDE
  2. DULOXETINE [Suspect]
     Active Substance: DULOXETINE

REACTIONS (5)
  - Product selection error [None]
  - Product substitution issue [None]
  - Intercepted product dispensing error [None]
  - Transcription medication error [None]
  - Product communication issue [None]
